FAERS Safety Report 19168961 (Version 2)
Quarter: 2021Q2

REPORT INFORMATION
  Report Type: Spontaneous
  Country: US (occurrence: US)
  Receive Date: 20210422
  Receipt Date: 20210505
  Transmission Date: 20210717
  Serious: Yes (Hospitalization)
  Sender: FDA-Public Use
  Company Number: US-PFIZER INC-2021400883

PATIENT
  Age: 53 Year
  Sex: Female
  Weight: 113.4 kg

DRUGS (21)
  1. AMBIEN CR [Suspect]
     Active Substance: ZOLPIDEM TARTRATE
     Dosage: UNK
     Dates: start: 2021
  2. LAMICTAL [Concomitant]
     Active Substance: LAMOTRIGINE
  3. CLARITINE [Concomitant]
     Active Substance: LORATADINE
  4. PILOCARPINE. [Concomitant]
     Active Substance: PILOCARPINE
  5. VESICARE [Concomitant]
     Active Substance: SOLIFENACIN SUCCINATE
  6. MELATONIN [Suspect]
     Active Substance: MELATONIN
     Dosage: UNK
     Dates: start: 2021
  7. MOBIC [Concomitant]
     Active Substance: MELOXICAM
  8. CAPLYTA [Suspect]
     Active Substance: LUMATEPERONE
     Indication: SCHIZOAFFECTIVE DISORDER BIPOLAR TYPE
     Dosage: 42 MG, 1X/DAY
     Route: 048
     Dates: start: 20210209, end: 20210302
  9. ZANTAC [Concomitant]
     Active Substance: RANITIDINE HYDROCHLORIDE
  10. LIPITOR [Concomitant]
     Active Substance: ATORVASTATIN CALCIUM
  11. REQUIP [Concomitant]
     Active Substance: ROPINIROLE HYDROCHLORIDE
  12. VISTARIL [Suspect]
     Active Substance: HYDROXYZINE PAMOATE
     Dosage: UNK
  13. XANAX XR [Concomitant]
     Active Substance: ALPRAZOLAM
  14. METFORMIN ER [Concomitant]
     Active Substance: METFORMIN HYDROCHLORIDE
  15. NORVASC [Concomitant]
     Active Substance: AMLODIPINE BESYLATE
  16. PREVACID [Concomitant]
     Active Substance: LANSOPRAZOLE
  17. PRAZOSIN. [Concomitant]
     Active Substance: PRAZOSIN
  18. KLONOPIN [Suspect]
     Active Substance: CLONAZEPAM
     Dosage: UNK
     Dates: start: 2021
  19. COGENTIN [Concomitant]
     Active Substance: BENZTROPINE MESYLATE
  20. ZOFRAN [Concomitant]
     Active Substance: ONDANSETRON HYDROCHLORIDE
  21. REGLAN [Concomitant]
     Active Substance: METOCLOPRAMIDE HYDROCHLORIDE

REACTIONS (9)
  - Encephalopathy [Unknown]
  - Muscular weakness [Recovered/Resolved]
  - Confusional state [Unknown]
  - Blood potassium decreased [Unknown]
  - White blood cell count increased [Unknown]
  - Fall [Recovered/Resolved]
  - Dysstasia [Unknown]
  - Balance disorder [Recovered/Resolved]
  - Dizziness [Recovered/Resolved]

NARRATIVE: CASE EVENT DATE: 202102
